FAERS Safety Report 17206560 (Version 1)
Quarter: 2020Q1

REPORT INFORMATION
  Report Type: Spontaneous
  Country: US (occurrence: US)
  Receive Date: 20191226
  Receipt Date: 20191226
  Transmission Date: 20200409
  Serious: Yes (Other)
  Sender: FDA-Public Use
  Company Number: None

PATIENT
  Age: 53 Year
  Sex: Male
  Weight: 88 kg

DRUGS (1)
  1. RHINO MALE ENHANCEMENT SUPPLEMENT [Suspect]
     Active Substance: DIETARY SUPPLEMENT
     Dosage: ?          OTHER FREQUENCY:ONCE;?

REACTIONS (1)
  - Headache [None]

NARRATIVE: CASE EVENT DATE: 20191224
